FAERS Safety Report 10181693 (Version 1)
Quarter: 2014Q2

REPORT INFORMATION
  Report Type: Spontaneous
  Country: GB (occurrence: GB)
  Receive Date: 20140519
  Receipt Date: 20140519
  Transmission Date: 20141212
  Serious: Yes (Other)
  Sender: FDA-Public Use
  Company Number: GB-MYLANLABS-2014S1010417

PATIENT
  Age: 62 Year
  Sex: 0

DRUGS (7)
  1. SIMVASTATIN [Suspect]
  2. CLOPIDOGREL [Concomitant]
  3. HYDROXOCOBALAMIN [Concomitant]
  4. LISINOPRIL [Concomitant]
  5. MIRTAZAPINE [Concomitant]
  6. SERTRALINE [Concomitant]
  7. VENLAFAXINE [Concomitant]

REACTIONS (1)
  - Loss of consciousness [Unknown]
